FAERS Safety Report 7785676-3 (Version None)
Quarter: 2011Q3

REPORT INFORMATION
  Report Type: 
  Country: None (occurrence: None)
  Receive Date: 20110929
  Receipt Date: 20110929
  Transmission Date: 20111222
  Serious: No
  Sender: FDA-Public Use
  Company Number: None

PATIENT
  Age: 54 Year
  Sex: Female
  Weight: 68.038 kg

DRUGS (1)
  1. BUPROPION HCL [Suspect]
     Indication: DEPRESSION
     Dosage: 100 MG
     Route: 048
     Dates: start: 20110911, end: 20110928

REACTIONS (5)
  - JAW DISORDER [None]
  - CONDITION AGGRAVATED [None]
  - TOOTH FRACTURE [None]
  - DEPRESSION [None]
  - COGNITIVE DISORDER [None]
